FAERS Safety Report 25063649 (Version 2)
Quarter: 2025Q2

REPORT INFORMATION
  Report Type: Spontaneous
  Country: US (occurrence: US)
  Receive Date: 20250311
  Receipt Date: 20250415
  Transmission Date: 20250716
  Serious: No
  Sender: MERCK SHARP AND DOHME
  Company Number: US-009507513-2255215

PATIENT
  Sex: Male
  Weight: 127.01 kg

DRUGS (18)
  1. SITAGLIPTIN PHOSPHATE [Suspect]
     Active Substance: SITAGLIPTIN PHOSPHATE
     Route: 048
  2. TYVASO DPI [Suspect]
     Active Substance: TREPROSTINIL
     Indication: Pulmonary arterial hypertension
     Route: 055
     Dates: start: 20231018
  3. ACETAMINOPHEN\HYDROCODONE [Concomitant]
     Active Substance: ACETAMINOPHEN\HYDROCODONE
  4. TAMSULOSIN HYDROCHLORIDE [Concomitant]
     Active Substance: TAMSULOSIN HYDROCHLORIDE
  5. WARFARIN SODIUM [Concomitant]
     Active Substance: WARFARIN SODIUM
  6. FINASTERIDE [Concomitant]
     Active Substance: FINASTERIDE
  7. ELIQUIS [Concomitant]
     Active Substance: APIXABAN
  8. SILDENAFIL CITRATE [Concomitant]
     Active Substance: SILDENAFIL CITRATE
  9. FLUBLOK QUADRIVALENT NOS [Concomitant]
     Active Substance: INFLUENZA VIRUS VACCINE
  10. METOPROLOL SUCCINATE [Concomitant]
     Active Substance: METOPROLOL SUCCINATE
  11. MAGNESIUM [Concomitant]
     Active Substance: MAGNESIUM
  12. GLIPIZIDE [Concomitant]
     Active Substance: GLIPIZIDE
  13. HUMULIN N [Concomitant]
     Active Substance: INSULIN HUMAN
  14. OXYGEN [Concomitant]
     Active Substance: OXYGEN
  15. LISINOPRIL [Concomitant]
     Active Substance: LISINOPRIL
  16. GABAPENTIN [Concomitant]
     Active Substance: GABAPENTIN
  17. FUROSEMIDE [Concomitant]
     Active Substance: FUROSEMIDE
  18. METFORMIN HYDROCHLORIDE [Suspect]
     Active Substance: METFORMIN HYDROCHLORIDE
     Dates: start: 2008

REACTIONS (2)
  - Diarrhoea [Recovered/Resolved]
  - Oedema [Unknown]
